FAERS Safety Report 13245908 (Version 3)
Quarter: 2017Q2

REPORT INFORMATION
  Report Type: Spontaneous
  Country: US (occurrence: US)
  Receive Date: 20170217
  Receipt Date: 20170520
  Transmission Date: 20170830
  Serious: No
  Sender: FDA-Public Use
  Company Number: US-TEVA-737808ACC

PATIENT
  Age: 62 Year
  Sex: Male

DRUGS (13)
  1. ALLOPURINOL. [Concomitant]
     Active Substance: ALLOPURINOL
  2. LYRICA [Concomitant]
     Active Substance: PREGABALIN
  3. VALSARTAN. [Concomitant]
     Active Substance: VALSARTAN
  4. VITAMIN D3 [Concomitant]
     Active Substance: CHOLECALCIFEROL
  5. FOLIC ACID. [Concomitant]
     Active Substance: FOLIC ACID
  6. COPAXONE [Concomitant]
     Active Substance: GLATIRAMER ACETATE
  7. FLOMAX [Concomitant]
     Active Substance: TAMSULOSIN HYDROCHLORIDE
  8. VITAMIN E [Concomitant]
     Active Substance: .ALPHA.-TOCOPHEROL
  9. CYMBALTA [Concomitant]
     Active Substance: DULOXETINE HYDROCHLORIDE
  10. COPAXONE [Suspect]
     Active Substance: GLATIRAMER ACETATE
     Route: 058
     Dates: start: 20160427
  11. BACLOFEN. [Concomitant]
     Active Substance: BACLOFEN
  12. COPAXONE [Suspect]
     Active Substance: GLATIRAMER ACETATE
     Indication: MULTIPLE SCLEROSIS
     Route: 058
     Dates: start: 20160427
  13. FISH OIL [Concomitant]
     Active Substance: FISH OIL

REACTIONS (4)
  - Drug dose omission [Unknown]
  - Memory impairment [Unknown]
  - Immediate post-injection reaction [Unknown]
  - Needle fatigue [Unknown]

NARRATIVE: CASE EVENT DATE: 201704
